FAERS Safety Report 9162108 (Version 1)
Quarter: 2013Q1

REPORT INFORMATION
  Report Type: Spontaneous
  Country: US (occurrence: None)
  Receive Date: 20130222
  Receipt Date: 20130222
  Transmission Date: 20140127
  Serious: Yes (Hospitalization, Other)
  Sender: FDA-Public Use
  Company Number: DAV-AE-CLO-13-01

PATIENT
  Age: 57 Year
  Sex: Male

DRUGS (4)
  1. CLONIDINE [Suspect]
     Indication: PRODUCT USED FOR UNKNOWN INDICATION
     Dosage: 1000 MICROG/ML AND FENTANYL 4000 MICROG/ML , 450 MICROG/D BASED ON FENTANYL
  2. BACLOFEN [Concomitant]
  3. BUPIVACAINE [Concomitant]
  4. FENTANYL [Concomitant]

REACTIONS (9)
  - Pain [None]
  - Agitation [None]
  - Nausea [None]
  - Tremor [None]
  - Drug withdrawal syndrome [None]
  - Device malfunction [None]
  - Implant site irritation [None]
  - Implant site discharge [None]
  - Impaired healing [None]
